FAERS Safety Report 25816936 (Version 1)
Quarter: 2025Q3

REPORT INFORMATION
  Report Type: Spontaneous
  Country: US (occurrence: None)
  Receive Date: 20250917
  Receipt Date: 20250917
  Transmission Date: 20251021
  Serious: Yes (Hospitalization)
  Sender: FDA-CTU
  Company Number: None

PATIENT
  Age: 68 Year
  Sex: Female

DRUGS (11)
  1. CAPECITABINE [Suspect]
     Active Substance: CAPECITABINE
     Indication: Breast cancer female
     Dosage: FREQUENCY : TWICE A DAY;?
     Route: 048
     Dates: start: 20250718
  2. CAPECITABINE [Suspect]
     Active Substance: CAPECITABINE
     Indication: Breast cancer female
  3. COUMADIN [Suspect]
     Active Substance: WARFARIN SODIUM
     Indication: Breast cancer female
     Dosage: FREQUENCY : TWICE A DAY;?
     Route: 048
     Dates: start: 20250718
  4. sertraline 100mg tabs [Concomitant]
  5. simvastatin 20mg tabs [Concomitant]
  6. loprol xi 100mg tabs [Concomitant]
  7. Warfarin 5mg tabs [Concomitant]
  8. magnesium 125mg caps [Concomitant]
  9. omega-3 1000mg [Concomitant]
  10. Vitamin b-1 100 mg tabs [Concomitant]
  11. vitamin d 1000IU Caps [Concomitant]

REACTIONS (1)
  - International normalised ratio increased [None]

NARRATIVE: CASE EVENT DATE: 20250814
